FAERS Safety Report 16265826 (Version 2)
Quarter: 2019Q2

REPORT INFORMATION
  Report Type: Spontaneous
  Country: US (occurrence: US)
  Receive Date: 20190502
  Receipt Date: 20190515
  Transmission Date: 20190711
  Serious: Yes (Hospitalization)
  Sender: FDA-Public Use
  Company Number: US-VERTEX PHARMACEUTICALS-2019-003537

PATIENT
  Age: 60 Year
  Sex: Female
  Weight: 76 kg

DRUGS (11)
  1. KALYDECO [Suspect]
     Active Substance: IVACAFTOR
     Indication: CYSTIC FIBROSIS
     Dosage: 150 MG; BID
     Route: 048
     Dates: start: 20170903
  2. CAYSTON [Concomitant]
     Active Substance: AZTREONAM
  3. PREDNISONE. [Concomitant]
     Active Substance: PREDNISONE
  4. DEXAMETHASONE W/TOBRAMYCIN [Concomitant]
     Active Substance: DEXAMETHASONE\TOBRAMYCIN
  5. VITAMIN C [Concomitant]
     Active Substance: ASCORBIC ACID
  6. ARAVA [Concomitant]
     Active Substance: LEFLUNOMIDE
  7. CARVEDILOL. [Concomitant]
     Active Substance: CARVEDILOL
  8. ALBUTEROL SULFATE. [Concomitant]
     Active Substance: ALBUTEROL SULFATE
  9. PULMOZYME [Concomitant]
     Active Substance: DORNASE ALFA
  10. OTEZLA [Concomitant]
     Active Substance: APREMILAST
  11. AMITRIPTYLINE HCL [Concomitant]
     Active Substance: AMITRIPTYLINE

REACTIONS (6)
  - Infective pulmonary exacerbation of cystic fibrosis [Recovered/Resolved]
  - Dyspnoea [Unknown]
  - Respiratory failure [Recovered/Resolved]
  - Pneumonia [Recovered/Resolved]
  - Haemoptysis [Recovered/Resolved]
  - Fatigue [Not Recovered/Not Resolved]

NARRATIVE: CASE EVENT DATE: 20190331
